FAERS Safety Report 18681190 (Version 1)
Quarter: 2020Q4

REPORT INFORMATION
  Report Type: Spontaneous
  Country: US (occurrence: US)
  Receive Date: 20201230
  Receipt Date: 20201230
  Transmission Date: 20210114
  Serious: No
  Sender: FDA-Public Use
  Company Number: US-SA-2020SA364118

PATIENT

DRUGS (1)
  1. LOVENOX [Suspect]
     Active Substance: ENOXAPARIN SODIUM
     Dosage: DRUG STRUCTURE DOSAGE :   UNKNOWN  DRUG INTERVAL DOSAGE :   UNKNOWN

REACTIONS (1)
  - Maternal exposure during breast feeding [Unknown]
